FAERS Safety Report 10224704 (Version 2)
Quarter: 2014Q2

REPORT INFORMATION
  Report Type: Spontaneous
  Country: FR (occurrence: FR)
  Receive Date: 20140609
  Receipt Date: 20140609
  Transmission Date: 20141212
  Serious: Yes (Hospitalization)
  Sender: FDA-Public Use
  Company Number: FR-PFIZER INC-2014144159

PATIENT
  Age: 70 Year
  Sex: Female

DRUGS (4)
  1. ATENOLOL [Suspect]
     Indication: HYPERTENSION
     Dosage: GENERIC
     Route: 065
  2. ATENOLOL [Suspect]
     Indication: CARDIAC DISORDER
  3. KENZEN [Suspect]
     Indication: HYPERTENSION
     Dosage: UNK
     Route: 048
  4. KENZEN [Suspect]
     Indication: CARDIAC DISORDER

REACTIONS (3)
  - Upper limb fracture [Unknown]
  - Heart rate increased [Unknown]
  - Blood pressure increased [Unknown]
